FAERS Safety Report 4633758-7 (Version None)
Quarter: 2005Q2

REPORT INFORMATION
  Report Type: 
  Country: None (occurrence: None)
  Receive Date: 20050325
  Receipt Date: 20041222
  Transmission Date: 20051028
  Serious: No
  Sender: FDA-Public Use
  Company Number: USA041286811

PATIENT
  Age: 86 Year
  Sex: Female
  Weight: 61 kg

DRUGS (3)
  1. FORTEO [Suspect]
     Indication: OSTEOPOROSIS
     Dates: start: 20040701
  2. ULTRAM [Concomitant]
  3. NASONEX [Concomitant]

REACTIONS (3)
  - ARTHRALGIA [None]
  - FLUID RETENTION [None]
  - WEIGHT INCREASED [None]
